FAERS Safety Report 15497134 (Version 1)
Quarter: 2018Q4

REPORT INFORMATION
  Report Type: Spontaneous
  Country: BE (occurrence: BE)
  Receive Date: 20181015
  Receipt Date: 20181015
  Transmission Date: 20190205
  Serious: Yes (Disabling)
  Sender: FDA-Public Use
  Company Number: BE-AMGEN-BELSP2018130903

PATIENT
  Age: 69 Year
  Sex: Female
  Weight: 45 kg

DRUGS (5)
  1. OXALIPLATIN. [Concomitant]
     Active Substance: OXALIPLATIN
     Indication: COLORECTAL CANCER METASTATIC
     Dosage: UNK, Q2WK (120)
     Dates: start: 20180626, end: 20180731
  2. VECTIBIX [Suspect]
     Active Substance: PANITUMUMAB
     Dosage: UNK, DOSE REDUCED
     Route: 042
     Dates: start: 2018
  3. VECTIBIX [Suspect]
     Active Substance: PANITUMUMAB
     Indication: COLORECTAL CANCER METASTATIC
     Dosage: 270 MG, Q2WK
     Route: 042
     Dates: start: 20180626
  4. 5-FU [Concomitant]
     Active Substance: FLUOROURACIL
     Indication: COLORECTAL CANCER METASTATIC
     Dosage: UNK, Q2WK (570)
     Dates: start: 20180626, end: 20180731
  5. FOLINIC ACID [Concomitant]
     Active Substance: LEUCOVORIN
     Indication: COLORECTAL CANCER METASTATIC
     Dosage: UNK, Q2WK (570)
     Dates: start: 20180626, end: 20180731

REACTIONS (3)
  - Abdominal pain [Recovered/Resolved]
  - Tremor [Recovered/Resolved]
  - Abdominal pain lower [Recovered/Resolved]

NARRATIVE: CASE EVENT DATE: 20180626
